FAERS Safety Report 6774847-0 (Version None)
Quarter: 2010Q2

REPORT INFORMATION
  Report Type: 
  Country: None (occurrence: None)
  Receive Date: 20100617
  Receipt Date: 20100615
  Transmission Date: 20101027
  Serious: Yes (Hospitalization)
  Sender: FDA-Public Use
  Company Number: A0862952A

PATIENT
  Sex: Female

DRUGS (3)
  1. ALLI [Suspect]
     Indication: WEIGHT LOSS DIET
     Route: 048
     Dates: start: 20100301
  2. CRESTOR [Concomitant]
  3. VICODIN [Concomitant]

REACTIONS (20)
  - ALANINE AMINOTRANSFERASE INCREASED [None]
  - ASPARTATE AMINOTRANSFERASE INCREASED [None]
  - BLOOD ALKALINE PHOSPHATASE INCREASED [None]
  - BLOOD CHOLESTEROL INCREASED [None]
  - CHILLS [None]
  - CULTURE URINE POSITIVE [None]
  - DECREASED APPETITE [None]
  - FEELING ABNORMAL [None]
  - GASTROOESOPHAGEAL REFLUX DISEASE [None]
  - HEPATIC STEATOSIS [None]
  - HEPATITIS [None]
  - LABORATORY TEST ABNORMAL [None]
  - MALAISE [None]
  - MENTAL IMPAIRMENT [None]
  - NIGHT SWEATS [None]
  - PYREXIA [None]
  - TREMOR [None]
  - ULTRASOUND ABDOMEN [None]
  - URINARY TRACT INFECTION [None]
  - VOMITING [None]
